FAERS Safety Report 4953717-4 (Version None)
Quarter: 2006Q1

REPORT INFORMATION
  Report Type: 
  Country: None (occurrence: None)
  Receive Date: 20060323
  Receipt Date: 20060323
  Transmission Date: 20060701
  Serious: No
  Sender: FDA-Public Use
  Company Number: None

PATIENT
  Age: 53 Year
  Sex: Female
  Weight: 78.0187 kg

DRUGS (9)
  1. CARDIZEM [Suspect]
     Indication: VALVULOPLASTY CARDIAC
     Dosage: 300MG   ONCE DAILY   PO
     Route: 048
     Dates: start: 20060222, end: 20060322
  2. SYNTHROID [Concomitant]
  3. LIPITOR [Concomitant]
  4. ENALAPRIL MALEATE [Concomitant]
  5. WELLBUTRIN XL [Concomitant]
  6. ASPIRIN [Concomitant]
  7. SINGULAIR [Concomitant]
  8. ALBUTEROL [Concomitant]
  9. COMBIVENT [Concomitant]

REACTIONS (3)
  - PRURITUS [None]
  - RASH [None]
  - SWELLING [None]
